FAERS Safety Report 5630971-7 (Version None)
Quarter: 2008Q1

REPORT INFORMATION
  Report Type: 
  Country: None (occurrence: None)
  Receive Date: 20080219
  Receipt Date: 20080206
  Transmission Date: 20080703
  Serious: Yes (Hospitalization, Other)
  Sender: FDA-Public Use
  Company Number: US-ELI_LILLY_AND_COMPANY-US200801001007

PATIENT
  Sex: Female

DRUGS (5)
  1. FORTEO [Suspect]
     Indication: OSTEOPOROSIS
     Route: 058
     Dates: start: 20070101
  2. ACTOS [Concomitant]
     Indication: BLOOD GLUCOSE ABNORMAL
     Dosage: UNK, DAILY (1/D)
  3. LESCOL [Concomitant]
     Indication: BLOOD CHOLESTEROL
     Dosage: UNK, DAILY (1/D)
  4. INSULIN [Concomitant]
     Dosage: UNK, 2/D
  5. VITAMINS [Concomitant]
     Dosage: UNK, DAILY (1/D)

REACTIONS (6)
  - ASTHENIA [None]
  - CERVICAL VERTEBRAL FRACTURE [None]
  - CLAVICLE FRACTURE [None]
  - DIABETIC RETINOPATHY [None]
  - NECK PAIN [None]
  - ROAD TRAFFIC ACCIDENT [None]
